FAERS Safety Report 24743351 (Version 3)
Quarter: 2025Q1

REPORT INFORMATION
  Report Type: Report from Study
  Country: US (occurrence: US)
  Receive Date: 20241217
  Receipt Date: 20250124
  Transmission Date: 20250408
  Serious: Yes (Other)
  Sender: ABBVIE
  Company Number: US-ABBVIE-6044833

PATIENT
  Age: 66 Year
  Sex: Female
  Weight: 103.41 kg

DRUGS (5)
  1. RINVOQ [Suspect]
     Active Substance: UPADACITINIB
     Indication: Crohn^s disease
     Dosage: FORM STRENGTH: 30MG
     Route: 048
     Dates: start: 202312, end: 202402
  2. RINVOQ [Suspect]
     Active Substance: UPADACITINIB
     Indication: Crohn^s disease
     Dosage: FORM STRENGTH: 30MG
     Route: 048
     Dates: start: 202402
  3. RINVOQ [Suspect]
     Active Substance: UPADACITINIB
     Indication: Crohn^s disease
     Route: 048
     Dates: start: 2024
  4. VITAMIN D [Concomitant]
     Active Substance: VITAMIN D NOS
     Indication: Vitamin supplementation
  5. MODERNA COVID-19 VACCINE [Concomitant]
     Active Substance: ELASOMERAN
     Indication: COVID-19 immunisation
     Route: 030
     Dates: start: 202312

REACTIONS (17)
  - Epistaxis [Recovered/Resolved]
  - Gastrooesophageal reflux disease [Recovered/Resolved]
  - Haemoptysis [Recovered/Resolved]
  - Immunodeficiency [Not Recovered/Not Resolved]
  - Choking [Recovered/Resolved]
  - Pneumonia [Recovered/Resolved]
  - Red blood cell count decreased [Unknown]
  - Pustular psoriasis [Unknown]
  - Polychondritis [Unknown]
  - Device loosening [Recovered/Resolved]
  - Feeling abnormal [Unknown]
  - Haemoglobin decreased [Unknown]
  - Weight increased [Recovered/Resolved]
  - Weight decreased [Recovering/Resolving]
  - Influenza [Recovered/Resolved]
  - Diarrhoea [Unknown]
  - Incontinence [Unknown]

NARRATIVE: CASE EVENT DATE: 20230201
